FAERS Safety Report 7750772-3 (Version None)
Quarter: 2011Q3

REPORT INFORMATION
  Report Type: 
  Country: None (occurrence: None)
  Receive Date: 20110914
  Receipt Date: 20110908
  Transmission Date: 20111222
  Serious: Yes (Other)
  Sender: FDA-Public Use
  Company Number: FR-BRISTOL-MYERS SQUIBB COMPANY-16045700

PATIENT
  Age: 41 Year
  Sex: Female

DRUGS (10)
  1. ACUPAN [Concomitant]
  2. OMEPRAZOLE [Concomitant]
  3. CLORAZEPATE DIPOTASSIUM [Concomitant]
  4. BISOPROLOL FUMARATE [Concomitant]
  5. VALIUM [Concomitant]
  6. ABILIFY [Suspect]
     Indication: HALLUCINATION
     Route: 048
  7. ABILIFY [Suspect]
     Indication: PSYCHOTIC DISORDER
     Route: 048
  8. ABILIFY [Suspect]
     Indication: AFFECTIVE DISORDER
     Route: 048
  9. ATARAX [Concomitant]
  10. BACLOFEN [Concomitant]

REACTIONS (2)
  - EPILEPSY [None]
  - ANOSMIA [None]
